FAERS Safety Report 8020230-X (Version None)
Quarter: 2012Q1

REPORT INFORMATION
  Report Type: 
  Country: None (occurrence: None)
  Receive Date: 20120103
  Receipt Date: 20110105
  Transmission Date: 20120608
  Serious: No
  Sender: FDA-Public Use
  Company Number: US-ABBOTT-11P-163-0803946-00

PATIENT
  Sex: Female
  Weight: 61.363 kg

DRUGS (1)
  1. PERINDOPRIL [Suspect]
     Indication: HYPERTENSION
     Dosage: DAILY DOSE: 2 MILLIGRAM(S), CONSUMER CUTS THE 4MG PILL IN HALF
     Route: 065
     Dates: start: 20101201

REACTIONS (1)
  - NAUSEA [None]
